FAERS Safety Report 9742569 (Version 1)
Quarter: 2013Q4

REPORT INFORMATION
  Report Type: Spontaneous
  Country: US (occurrence: US)
  Receive Date: 20131210
  Receipt Date: 20131210
  Transmission Date: 20140711
  Serious: No
  Sender: FDA-Public Use
  Company Number: US-GILEAD-2009-0024521

PATIENT
  Sex: Male
  Weight: 88.45 kg

DRUGS (17)
  1. LETAIRIS [Suspect]
     Indication: PULMONARY ARTERIAL HYPERTENSION
     Route: 048
     Dates: start: 20090305
  2. LEVAQUIN [Concomitant]
  3. VIAGRA [Concomitant]
  4. SINGULAIR [Concomitant]
  5. PRINIVIL [Concomitant]
  6. PRILOSEC [Concomitant]
  7. COREG CR [Concomitant]
  8. LASIX [Concomitant]
  9. TYLENOL [Concomitant]
  10. ALBUTEROL INHALER [Concomitant]
  11. GLUCOPHAGE [Concomitant]
  12. LOVASTATIN [Concomitant]
  13. LOVASTATIN [Concomitant]
  14. VENTOLIN INHALER [Concomitant]
  15. ADVAIR [Concomitant]
  16. SPRIVA CP-HANDIHALER [Concomitant]
  17. PREVACID [Concomitant]

REACTIONS (1)
  - Swelling [Unknown]
